FAERS Safety Report 7257573-3 (Version None)
Quarter: 2011Q1

REPORT INFORMATION
  Report Type: 
  Country: None (occurrence: None)
  Receive Date: 20110129
  Receipt Date: 20100607
  Transmission Date: 20110831
  Serious: No
  Sender: FDA-Public Use
  Company Number: US-ABBOTT-10P-163-0649222-00

PATIENT
  Age: 71 Year
  Sex: Male

DRUGS (6)
  1. FINASTERIDE [Concomitant]
     Indication: PROSTATIC DISORDER
  2. BAYER LOW DOSE [Concomitant]
     Indication: PRODUCT USED FOR UNKNOWN INDICATION
  3. CALTRATE [Concomitant]
     Indication: PRODUCT USED FOR UNKNOWN INDICATION
  4. HYDROCODONE [Concomitant]
     Indication: PRODUCT USED FOR UNKNOWN INDICATION
     Dosage: 5/500 3-4 DAILY
  5. HUMIRA [Suspect]
     Indication: CROHN'S DISEASE
     Dates: start: 20090101
  6. OSTEO-BI-FLEX [Concomitant]
     Indication: ARTHRITIS

REACTIONS (4)
  - BACK PAIN [None]
  - PAIN IN EXTREMITY [None]
  - OSTEOARTHRITIS [None]
  - ARTHRALGIA [None]
